FAERS Safety Report 16079991 (Version 2)
Quarter: 2019Q2

REPORT INFORMATION
  Report Type: Report from Study
  Country: US (occurrence: US)
  Receive Date: 20190315
  Receipt Date: 20190510
  Transmission Date: 20190711
  Serious: Yes (Hospitalization)
  Sender: FDA-Public Use
  Company Number: US-ACTELION-A-US2017-149198

PATIENT
  Age: 60 Year
  Sex: Female
  Weight: 107.94 kg

DRUGS (25)
  1. UPTRAVI [Suspect]
     Active Substance: SELEXIPAG
     Dosage: 800 MCG, BID
     Route: 048
  2. ALBUTEROL. [Concomitant]
     Active Substance: ALBUTEROL
     Dosage: PRN 5 X A DAY
  3. GLIPIZIDE. [Concomitant]
     Active Substance: GLIPIZIDE
     Dosage: 5 MG, QD
     Route: 048
  4. RIVAROXABAN [Concomitant]
     Active Substance: RIVAROXABAN
     Dosage: 20 MG, QD
     Route: 048
     Dates: start: 20171129
  5. CODEINE SULFATE W/GUAIFENESIN [Concomitant]
     Indication: COUGH
     Dosage: 5 ML, PRN
     Route: 048
  6. UPTRAVI [Suspect]
     Active Substance: SELEXIPAG
     Dosage: 1000 MCG, BID
     Route: 048
     Dates: start: 20170221
  7. ALBUTEROL. [Concomitant]
     Active Substance: ALBUTEROL
     Dosage: 2.5 MG/3 ML EVERY 6 HRS AS NEEDED
     Route: 055
  8. MUCINEX [Concomitant]
     Active Substance: GUAIFENESIN
     Indication: COUGH
     Dosage: 600 MG,EVERY 12 HRS, PRN
     Route: 048
  9. LOPERAMIDE [Concomitant]
     Active Substance: LOPERAMIDE
     Indication: DIARRHOEA
     Dosage: 2 MG, EVERY 24 HRS, PRN
     Route: 048
  10. OXYGEN. [Concomitant]
     Active Substance: OXYGEN
     Dosage: 3-5 L CONTINUOUS
  11. UPTRAVI [Suspect]
     Active Substance: SELEXIPAG
     Dosage: 1200 MCG, BID
     Route: 048
  12. SILDENAFIL. [Concomitant]
     Active Substance: SILDENAFIL
     Dosage: 20 MG, TID
     Route: 048
  13. EUCERIN [Concomitant]
     Active Substance: ENSULIZOLE\EUCERIN\OCTINOXATE\OCTISALATE\TITANIUM DIOXIDE\ZINC OXIDE
     Indication: DRY SKIN
     Dosage: 1 APPLICATION, BID
     Route: 061
  14. MUCINEX [Concomitant]
     Active Substance: GUAIFENESIN
     Indication: PULMONARY CONGESTION
  15. XARELTO [Concomitant]
     Active Substance: RIVAROXABAN
     Dosage: 20 MG (TITER), QD
     Route: 048
  16. BENZONATATE. [Concomitant]
     Active Substance: BENZONATATE
     Indication: COUGH
     Dosage: 200 MCG, PRN
     Route: 048
  17. UPTRAVI [Suspect]
     Active Substance: SELEXIPAG
     Dosage: 200 MCG, BID
     Route: 048
  18. ALBUTEROL. [Concomitant]
     Active Substance: ALBUTEROL
     Indication: WHEEZING
     Dosage: 90 MCG, 2 PUFFS QID PRN
     Route: 055
  19. DOXYCYCLINE. [Concomitant]
     Active Substance: DOXYCYCLINE
     Route: 048
  20. UPTRAVI [Suspect]
     Active Substance: SELEXIPAG
     Indication: PULMONARY HYPERTENSION
     Dosage: 400 MCG, BID
     Route: 048
  21. UPTRAVI [Suspect]
     Active Substance: SELEXIPAG
     Dosage: 600 MCG, BID
     Route: 048
     Dates: start: 20161222
  22. TORSEMIDE. [Concomitant]
     Active Substance: TORSEMIDE
     Dosage: 20 MG, TID
  23. POTASSIUM CHLORIDE. [Concomitant]
     Active Substance: POTASSIUM CHLORIDE
     Dosage: 40 MEQ, BID
     Route: 048
  24. TORSEMIDE. [Concomitant]
     Active Substance: TORSEMIDE
     Dosage: 20 MG, QD
     Route: 048
  25. UPTRAVI [Suspect]
     Active Substance: SELEXIPAG
     Dosage: 600 IN AM, 800MCG IN PM
     Route: 048

REACTIONS (28)
  - Right ventricular failure [Recovered/Resolved]
  - Acute left ventricular failure [Recovering/Resolving]
  - Fluid overload [Recovering/Resolving]
  - Headache [Unknown]
  - Bronchitis bacterial [Recovered/Resolved]
  - Skin candida [Recovering/Resolving]
  - Treatment noncompliance [Unknown]
  - Oxygen therapy [Unknown]
  - Pain in extremity [Recovered/Resolved]
  - Condition aggravated [Recovering/Resolving]
  - Urine output decreased [Recovering/Resolving]
  - Ventricular tachycardia [Recovered/Resolved]
  - Product dose omission [Unknown]
  - Gout [Recovered/Resolved]
  - Weight increased [Recovering/Resolving]
  - Influenza like illness [Recovered/Resolved]
  - Upper respiratory tract infection [Recovering/Resolving]
  - Respiratory failure [Recovered/Resolved]
  - Dyspnoea [Recovered/Resolved]
  - Nodal arrhythmia [Recovering/Resolving]
  - Orthopnoea [Recovering/Resolving]
  - Diarrhoea [Unknown]
  - Pain in jaw [Unknown]
  - Hypoxia [Recovered/Resolved]
  - Fluid retention [Unknown]
  - Acute kidney injury [Recovering/Resolving]
  - Decubitus ulcer [Recovering/Resolving]
  - Swelling [Unknown]

NARRATIVE: CASE EVENT DATE: 20180123
